FAERS Safety Report 7217064-2 (Version None)
Quarter: 2011Q1

REPORT INFORMATION
  Report Type: 
  Country: None (occurrence: None)
  Receive Date: 20110110
  Receipt Date: 20110104
  Transmission Date: 20110831
  Serious: Yes (Death)
  Sender: FDA-Public Use
  Company Number: DK-NOVOPROD-315071

PATIENT
  Age: 61 Year
  Sex: Male
  Weight: 96 kg

DRUGS (1)
  1. VICTOZA [Suspect]
     Indication: DIABETES MELLITUS
     Dosage: 1.2 MG, QD
     Route: 058
     Dates: start: 20100401

REACTIONS (1)
  - GASTRITIS HAEMORRHAGIC [None]
